FAERS Safety Report 7199728-2 (Version None)
Quarter: 2010Q4

REPORT INFORMATION
  Report Type: 
  Country: None (occurrence: None)
  Receive Date: 20101228
  Receipt Date: 20101220
  Transmission Date: 20110411
  Serious: No
  Sender: FDA-Public Use
  Company Number: US-JNJFOC-20101207482

PATIENT
  Sex: Male
  Weight: 90.72 kg

DRUGS (1)
  1. STELARA [Suspect]
     Indication: PSORIASIS
     Route: 058

REACTIONS (6)
  - BLOOD CHOLESTEROL INCREASED [None]
  - DIZZINESS [None]
  - FEELING ABNORMAL [None]
  - HYPERSENSITIVITY [None]
  - VISION BLURRED [None]
  - VITAMIN D DEFICIENCY [None]
